FAERS Safety Report 5817420-0 (Version None)
Quarter: 2008Q3

REPORT INFORMATION
  Report Type: 
  Country: None (occurrence: None)
  Receive Date: 20080722
  Receipt Date: 20080421
  Transmission Date: 20090109
  Serious: No
  Sender: FDA-Public Use
  Company Number: US-BAYER-200821292NA

PATIENT
  Age: 47 Year
  Sex: Female
  Weight: 51 kg

DRUGS (1)
  1. MIRENA [Suspect]
     Indication: HAEMORRHAGE
     Route: 015
     Dates: start: 20080319

REACTIONS (4)
  - ACNE [None]
  - ALOPECIA [None]
  - HEADACHE [None]
  - POST PROCEDURAL HAEMORRHAGE [None]
